FAERS Safety Report 8125022-9 (Version None)
Quarter: 2012Q1

REPORT INFORMATION
  Report Type: 
  Country: None (occurrence: None)
  Receive Date: 20120209
  Receipt Date: 20111227
  Transmission Date: 20120608
  Serious: Yes (Hospitalization)
  Sender: FDA-Public Use
  Company Number: PT-ACTELION PHARMACEUTICALS LTD-A-CH2012-60760

PATIENT
  Sex: Female

DRUGS (1)
  1. TRACLEER [Suspect]
     Indication: SKIN ULCER
     Dosage: UNK
     Route: 048

REACTIONS (2)
  - SKIN ULCER [None]
  - CONDITION AGGRAVATED [None]
